FAERS Safety Report 23942799 (Version 4)
Quarter: 2024Q3

REPORT INFORMATION
  Report Type: Spontaneous
  Country: US (occurrence: US)
  Receive Date: 20240605
  Receipt Date: 20240919
  Transmission Date: 20241016
  Serious: Yes (Hospitalization, Other)
  Sender: AVADEL CNS PHARMA
  Company Number: US-AVADEL CNS PHARMACEUTICALS, LLC-2024AVA00820

PATIENT
  Sex: Female
  Weight: 69.841 kg

DRUGS (19)
  1. LUMRYZ [Suspect]
     Active Substance: SODIUM OXYBATE
     Indication: Narcolepsy
     Dosage: 4.5 G (REPORTED AS ^4^), ONCE NIGHTLY
     Route: 048
     Dates: start: 2023, end: 2024
  2. LUMRYZ [Suspect]
     Active Substance: SODIUM OXYBATE
     Indication: Narcolepsy
     Dosage: 6 G, ONCE NIGHTLY
     Route: 048
     Dates: start: 2024, end: 2024
  3. LUMRYZ [Suspect]
     Active Substance: SODIUM OXYBATE
     Indication: Narcolepsy
     Dosage: 7.5 G, ONCE NIGHTLY
     Route: 048
     Dates: start: 2024, end: 2024
  4. LUMRYZ [Suspect]
     Active Substance: SODIUM OXYBATE
     Dosage: 7.5 G, ONCE NIGHTLY
     Route: 048
     Dates: start: 20240816
  5. SUNOSI [Suspect]
     Active Substance: SOLRIAMFETOL
     Dosage: UNK (DURING THE DAYTIME)
  6. LAMICTAL [Suspect]
     Active Substance: LAMOTRIGINE
     Dosage: UNK (LOWER DOSE; JUST LESS THAN 125 MG)
  7. LAMICTAL [Suspect]
     Active Substance: LAMOTRIGINE
     Dosage: 125 MG OR 150 MG
  8. LATUDA [Suspect]
     Active Substance: LURASIDONE HYDROCHLORIDE
     Dosage: UNK
     Dates: start: 2024, end: 2024
  9. ZEPBOUND [Concomitant]
     Active Substance: TIRZEPATIDE
     Dosage: UNK
     Dates: start: 2024
  10. CYMBALTA [Concomitant]
     Active Substance: DULOXETINE HYDROCHLORIDE
  11. FEXOFENADINE [Concomitant]
     Active Substance: FEXOFENADINE HYDROCHLORIDE
  12. FAMOTIDINE [Concomitant]
     Active Substance: FAMOTIDINE
  13. CELECOXIB [Concomitant]
     Active Substance: CELECOXIB
  14. PANTOPRAZOLE [Concomitant]
     Active Substance: PANTOPRAZOLE
  15. VALACYCLOVIR [Concomitant]
     Active Substance: VALACYCLOVIR HYDROCHLORIDE
  16. MOUNJARO [Concomitant]
     Active Substance: TIRZEPATIDE
     Dosage: UNK
     Dates: start: 2024, end: 2024
  17. MOUNJARO [Concomitant]
     Active Substance: TIRZEPATIDE
     Dosage: UNK (INCREASED DOSE)
     Dates: start: 2024
  18. ONDANSETRON [Concomitant]
     Active Substance: ONDANSETRON
  19. MULTIPLE UNSPECIFIED ^CNS (CENTRAL NERVOUS SYSTEM) TYPE MEDICATIONS^ [Concomitant]

REACTIONS (53)
  - Bipolar disorder [Unknown]
  - Mental disorder [Unknown]
  - Serotonin syndrome [Recovering/Resolving]
  - Suicidal ideation [Recovered/Resolved]
  - Depression [Unknown]
  - Anxiety [Unknown]
  - Stress [Unknown]
  - Insomnia [Not Recovered/Not Resolved]
  - Trismus [Unknown]
  - Facial pain [Unknown]
  - Transient lingual papillitis [Unknown]
  - Night sweats [Unknown]
  - Coordination abnormal [Unknown]
  - Balance disorder [Unknown]
  - Bradykinesia [Unknown]
  - Hypermetabolism [Unknown]
  - Energy increased [Unknown]
  - Crying [Unknown]
  - Social avoidant behaviour [Not Recovered/Not Resolved]
  - Feeling of despair [Unknown]
  - Psychological trauma [Unknown]
  - Brain fog [Unknown]
  - Time perception altered [Unknown]
  - Dissociation [Unknown]
  - Hypersomnia [Unknown]
  - Photophobia [Unknown]
  - Fatigue [Unknown]
  - Circadian rhythm sleep disorder [Unknown]
  - Hypophagia [Unknown]
  - Dehydration [Unknown]
  - Heart rate abnormal [Not Recovered/Not Resolved]
  - Palpitations [Not Recovered/Not Resolved]
  - Akathisia [Not Recovered/Not Resolved]
  - Burning sensation [Not Recovered/Not Resolved]
  - Middle insomnia [Not Recovered/Not Resolved]
  - Taste disorder [Not Recovered/Not Resolved]
  - Therapeutic product effect prolonged [Unknown]
  - Memory impairment [Unknown]
  - Hyperhidrosis [Unknown]
  - Nocturia [Unknown]
  - Somnolence [Unknown]
  - Enuresis [Unknown]
  - Nausea [Unknown]
  - Vomiting [Unknown]
  - Dizziness [Unknown]
  - Emotional disorder [Unknown]
  - Panic attack [Unknown]
  - Paranoia [Unknown]
  - Pain [Not Recovered/Not Resolved]
  - Dry mouth [Not Recovered/Not Resolved]
  - Unevaluable event [Unknown]
  - Therapeutic product effect decreased [Not Recovered/Not Resolved]
  - Product dose omission issue [Recovered/Resolved]

NARRATIVE: CASE EVENT DATE: 20240101
